FAERS Safety Report 9069520 (Version 1)
Quarter: 2013Q1

REPORT INFORMATION
  Report Type: Report from Study
  Country: US (occurrence: US)
  Receive Date: 20130131
  Receipt Date: 20130131
  Transmission Date: 20140127
  Serious: No
  Sender: FDA-Public Use
  Company Number: US-ABBOTT-12P-163-0918467-00

PATIENT
  Sex: Female

DRUGS (1)
  1. HUMIRA 40 MG/0.8 ML PEN [Suspect]
     Indication: PSORIATIC ARTHROPATHY
     Dates: start: 201202

REACTIONS (11)
  - Fatigue [Unknown]
  - Feeling abnormal [Unknown]
  - Skin tightness [Unknown]
  - Joint stiffness [Unknown]
  - Breast enlargement [Recovering/Resolving]
  - Breast tenderness [Unknown]
  - Weight increased [Unknown]
  - Headache [Unknown]
  - Local swelling [Unknown]
  - Headache [Unknown]
  - Rash [Unknown]
